FAERS Safety Report 8629922 (Version 3)
Quarter: 2013Q2

REPORT INFORMATION
  Report Type: Spontaneous
  Country: US (occurrence: US)
  Receive Date: 20120622
  Receipt Date: 20130423
  Transmission Date: 20140414
  Serious: Yes (Death, Hospitalization)
  Sender: FDA-Public Use
  Company Number: US-BRISTOL-MYERS SQUIBB COMPANY-16591091

PATIENT
  Age: 71 Year
  Sex: Female

DRUGS (3)
  1. YERVOY [Suspect]
     Indication: METASTATIC MALIGNANT MELANOMA
     Dosage: 1 DF: 355
     Route: 042
     Dates: start: 20120423, end: 20120514
  2. ZOFRAN [Concomitant]
  3. PROTONIX [Concomitant]

REACTIONS (2)
  - Enterocolitis haemorrhagic [Fatal]
  - Malignant neoplasm progression [Fatal]
